FAERS Safety Report 4809859-7 (Version None)
Quarter: 2005Q4

REPORT INFORMATION
  Report Type: 
  Country: None (occurrence: None)
  Receive Date: 20051024
  Receipt Date: 20051024
  Transmission Date: 20060501
  Serious: Yes (Hospitalization, Other)
  Sender: FDA-Public Use
  Company Number: None

PATIENT
  Age: 21 Year
  Sex: Female
  Weight: 79.3795 kg

DRUGS (1)
  1. ORTHO TRI-CYCLEN [Suspect]
     Indication: CONTRACEPTION
     Dosage: 1 PILL EVERYDAY PO
     Route: 048
     Dates: start: 20010801, end: 20050521

REACTIONS (4)
  - BLOOD PRESSURE IMMEASURABLE [None]
  - DIZZINESS [None]
  - MALAISE [None]
  - PULMONARY EMBOLISM [None]
